APPROVED DRUG PRODUCT: FUROSCIX
Active Ingredient: FUROSEMIDE
Strength: 80MG/10ML (8MG/ML)
Dosage Form/Route: SOLUTION;SUBCUTANEOUS
Application: N209988 | Product #001
Applicant: SCPHARMACEUTICALS INC
Approved: Oct 7, 2022 | RLD: Yes | RS: Yes | Type: RX

PATENTS:
Patent 11433044 | Expires: Apr 3, 2034
Patent 9884039 | Expires: Apr 3, 2034
Patent 12370168 | Expires: Apr 3, 2034
Patent 10272064 | Expires: Apr 3, 2034